FAERS Safety Report 21621694 (Version 1)
Quarter: 2022Q4

REPORT INFORMATION
  Report Type: Spontaneous
  Country: US (occurrence: US)
  Receive Date: 20221121
  Receipt Date: 20221121
  Transmission Date: 20230113
  Serious: No
  Sender: FDA-Public Use
  Company Number: US-MERCK-MNSC-02280818

PATIENT
  Sex: Female

DRUGS (2)
  1. TEMOZOLOMIDE [Suspect]
     Active Substance: TEMOZOLOMIDE
     Indication: Glioblastoma
     Dosage: 100 MG OR 140 MG, UNK
     Route: 048
     Dates: start: 202106, end: 202112
  2. TEMOZOLOMIDE [Suspect]
     Active Substance: TEMOZOLOMIDE
     Dosage: DOUBLE DOSE, UNK
     Route: 048
     Dates: start: 202112

REACTIONS (2)
  - Drug ineffective [Unknown]
  - Weight decreased [Unknown]
